FAERS Safety Report 20648260 (Version 1)
Quarter: 2022Q1

REPORT INFORMATION
  Report Type: Spontaneous
  Country: HK (occurrence: HK)
  Receive Date: 20220329
  Receipt Date: 20220329
  Transmission Date: 20220423
  Serious: Yes (Life-Threatening, Hospitalization)
  Sender: FDA-Public Use
  Company Number: HK-AMNEAL PHARMACEUTICALS-2022-AMRX-00799

PATIENT
  Age: 6 Month
  Sex: Male

DRUGS (3)
  1. FLECAINIDE ACETATE [Suspect]
     Active Substance: FLECAINIDE ACETATE
     Indication: Atrial tachycardia
     Dosage: UNK
     Route: 065
  2. NADOLOL [Concomitant]
     Active Substance: NADOLOL
     Indication: Atrial tachycardia
     Dosage: UNK
     Route: 065
  3. AMIODARONE [Concomitant]
     Active Substance: AMIODARONE
     Indication: Atrial tachycardia
     Dosage: UNK
     Route: 065

REACTIONS (4)
  - Toxicity to various agents [Unknown]
  - Cardiac failure [Unknown]
  - Bradycardia [Unknown]
  - Hypotension [Unknown]
